FAERS Safety Report 9056340 (Version 1)
Quarter: 2013Q1

REPORT INFORMATION
  Report Type: Spontaneous
  Country: PL (occurrence: PL)
  Receive Date: 20130204
  Receipt Date: 20130204
  Transmission Date: 20140127
  Serious: Yes (Other)
  Sender: FDA-Public Use
  Company Number: PL-ROCHE-1186397

PATIENT
  Age: 39 Year
  Sex: Female

DRUGS (3)
  1. HERCEPTIN [Suspect]
     Indication: PRODUCT USED FOR UNKNOWN INDICATION
     Route: 065
  2. XELODA [Suspect]
     Indication: PRODUCT USED FOR UNKNOWN INDICATION
     Route: 065
     Dates: start: 2011
  3. LAPATINIB [Concomitant]
     Route: 065
     Dates: start: 2011

REACTIONS (3)
  - Metastases to central nervous system [Unknown]
  - Lung disorder [Unknown]
  - Lymphadenopathy mediastinal [Unknown]
